FAERS Safety Report 9438438 (Version 1)
Quarter: 2013Q3

REPORT INFORMATION
  Report Type: Spontaneous
  Country: US (occurrence: US)
  Receive Date: 20130802
  Receipt Date: 20130802
  Transmission Date: 20140515
  Serious: Yes (Hospitalization)
  Sender: FDA-Public Use
  Company Number: US-BRISTOL-MYERS SQUIBB COMPANY-17284761

PATIENT
  Age: 34 Year
  Sex: Male
  Weight: 111 kg

DRUGS (11)
  1. COUMADIN [Suspect]
     Dosage: 1 DF: OVER 100MG,INCREASED UP TO 120 MG DAILY,PAST
     Dates: start: 20121005, end: 20121110
  2. ZOFRAN [Concomitant]
  3. ASACOL [Concomitant]
  4. DILAUDID [Concomitant]
  5. INVANZ [Concomitant]
  6. METOPROLOL [Concomitant]
  7. BENAZEPRIL HCL [Concomitant]
  8. MAGNESIUM SULFATE [Concomitant]
     Dosage: IV INJECTION
  9. MORPHINE [Concomitant]
  10. VALTREX [Concomitant]
  11. VANCOMYCIN [Concomitant]
     Route: 042

REACTIONS (2)
  - Anticoagulation drug level below therapeutic [Unknown]
  - Drug ineffective [Unknown]
